FAERS Safety Report 6522703-5 (Version None)
Quarter: 2009Q4

REPORT INFORMATION
  Report Type: 
  Country: None (occurrence: None)
  Receive Date: 20091222
  Receipt Date: 20091207
  Transmission Date: 20100525
  Serious: Yes (Other)
  Sender: FDA-Public Use
  Company Number: 455398

PATIENT
  Age: 40 Year
  Sex: Female
  Weight: 60 kg

DRUGS (8)
  1. METHOTREXATE [Suspect]
     Dosage: 25 MG, SUBCUTANEOUS
     Route: 058
  2. CITALOPRAM HYDROBROMIDE [Suspect]
  3. CLOPIDOGREL [Suspect]
  4. DICLOFENAC SODIUM [Suspect]
  5. DIHYDROCODEINE BITARTRATE INJ [Suspect]
     Dosage: ORAL
     Route: 048
  6. ENBREL [Suspect]
     Dosage: 25 MG, SUBCUTANEOUS
     Route: 058
  7. FOLIC ACID [Suspect]
  8. HYDROXYCHLOROQUINE SULFATE [Suspect]
     Dosage: 200 MG, ORAL
     Route: 048

REACTIONS (1)
  - GALACTORRHOEA [None]
